FAERS Safety Report 7875976-0 (Version None)
Quarter: 2011Q4

REPORT INFORMATION
  Report Type: 
  Country: None (occurrence: None)
  Receive Date: 20111031
  Receipt Date: 20111024
  Transmission Date: 20120403
  Serious: Yes (Disabling)
  Sender: FDA-Public Use
  Company Number: GB-TEVA-306090ISR

PATIENT
  Age: 71 Year
  Sex: Female
  Weight: 101.8 kg

DRUGS (9)
  1. CODEINE SULFATE [Suspect]
     Dates: start: 20111012
  2. CO-DYDRAMOL [Concomitant]
     Dates: start: 20110718, end: 20110730
  3. CODEINE SULFATE [Suspect]
     Dates: start: 20110816, end: 20111012
  4. LOSARTAN POTASSIUM [Concomitant]
     Dates: start: 20110628
  5. METHYLPREDNISOLONE ACETATE [Concomitant]
     Dates: start: 20110906, end: 20110907
  6. OMEPRAZOLE [Concomitant]
     Dates: start: 20110628
  7. ACETAMINOPHEN [Concomitant]
     Dates: start: 20110817
  8. CO-TRIAMTERZIDE [Concomitant]
     Dates: start: 20110617
  9. PREDNISOLONE [Concomitant]
     Dates: start: 20110615, end: 20110713

REACTIONS (2)
  - INFLAMMATION [None]
  - OEDEMA PERIPHERAL [None]
